FAERS Safety Report 21928092 (Version 1)
Quarter: 2023Q1

REPORT INFORMATION
  Report Type: Spontaneous
  Country: CA (occurrence: CA)
  Receive Date: 20230130
  Receipt Date: 20230130
  Transmission Date: 20230417
  Serious: Yes (Hospitalization, Other)
  Sender: FDA-Public Use
  Company Number: CA-BoehringerIngelheim-2023-BI-215345

PATIENT
  Age: 59 Year
  Sex: Female

DRUGS (9)
  1. JARDIANCE [Suspect]
     Active Substance: EMPAGLIFLOZIN
     Indication: Product used for unknown indication
  2. JARDIANCE [Suspect]
     Active Substance: EMPAGLIFLOZIN
  3. INSULIN HUMAN [Suspect]
     Active Substance: INSULIN HUMAN
     Indication: Product used for unknown indication
     Dosage: RDNA ORIGIN
  4. ISOPHANE INSULIN [Suspect]
     Active Substance: INSULIN NOS
     Indication: Product used for unknown indication
  5. SAXAGLIPTIN HYDROCHLORIDE [Suspect]
     Active Substance: SAXAGLIPTIN HYDROCHLORIDE
     Indication: Product used for unknown indication
     Route: 048
  6. SAXAGLIPTIN HYDROCHLORIDE [Suspect]
     Active Substance: SAXAGLIPTIN HYDROCHLORIDE
     Route: 048
  7. GLICLAZIDE [Concomitant]
     Active Substance: GLICLAZIDE
     Indication: Product used for unknown indication
  8. GLYBURIDE [Concomitant]
     Active Substance: GLYBURIDE
     Indication: Product used for unknown indication
  9. METFORMIN [Concomitant]
     Active Substance: METFORMIN HYDROCHLORIDE
     Indication: Product used for unknown indication

REACTIONS (4)
  - Syncope [Unknown]
  - Ketoacidosis [Unknown]
  - Arrhythmia [Unknown]
  - Drug interaction [Unknown]
